FAERS Safety Report 6795144-3 (Version None)
Quarter: 2010Q2

REPORT INFORMATION
  Report Type: 
  Country: None (occurrence: None)
  Receive Date: 20100625
  Receipt Date: 20100625
  Transmission Date: 20101027
  Serious: Yes (Hospitalization)
  Sender: FDA-Public Use
  Company Number: PHHO2008FR13837

PATIENT
  Sex: Male

DRUGS (3)
  1. AFINITOR [Suspect]
     Indication: PANCREATIC NEUROENDOCRINE TUMOUR
     Dosage: 10 MG DAILY
     Route: 048
     Dates: start: 20080909, end: 20081001
  2. AFINITOR [Suspect]
     Dosage: NO TREATMENT
     Dates: start: 20081002, end: 20081002
  3. AFINITOR [Suspect]
     Dosage: 10 MG DAILY
     Route: 048
     Dates: start: 20081003, end: 20081124

REACTIONS (3)
  - BRONCHOPNEUMOPATHY [None]
  - COUGH [None]
  - DYSPNOEA [None]
